FAERS Safety Report 9350590 (Version 2)
Quarter: 2013Q3

REPORT INFORMATION
  Report Type: Spontaneous
  Country: DE (occurrence: DE)
  Receive Date: 20130617
  Receipt Date: 20130926
  Transmission Date: 20140515
  Serious: Yes (Hospitalization, Other)
  Sender: FDA-Public Use
  Company Number: DE-JNJFOC-20130607346

PATIENT
  Age: 46 Year
  Sex: Female
  Weight: 65 kg

DRUGS (22)
  1. XARELTO [Suspect]
     Indication: THROMBOSIS PROPHYLAXIS
     Dosage: START DATE: 11-JAN-2013.
     Route: 048
     Dates: end: 201302
  2. XARELTO [Suspect]
     Indication: THROMBOSIS PROPHYLAXIS
     Route: 048
     Dates: start: 201302, end: 20130314
  3. XARELTO [Suspect]
     Indication: THROMBOSIS PROPHYLAXIS
     Route: 048
     Dates: start: 20130315
  4. XARELTO [Suspect]
     Indication: CEREBROVASCULAR ACCIDENT PROPHYLAXIS
     Route: 048
     Dates: start: 20130315
  5. XARELTO [Suspect]
     Indication: CEREBROVASCULAR ACCIDENT PROPHYLAXIS
     Route: 048
     Dates: start: 201302, end: 20130314
  6. XARELTO [Suspect]
     Indication: CEREBROVASCULAR ACCIDENT PROPHYLAXIS
     Dosage: START DATE: 11-JAN-2013.
     Route: 048
     Dates: end: 201302
  7. XARELTO [Suspect]
     Indication: CEREBROVASCULAR ACCIDENT
     Route: 048
     Dates: start: 20130315
  8. XARELTO [Suspect]
     Indication: CEREBROVASCULAR ACCIDENT
     Route: 048
     Dates: start: 201302, end: 20130314
  9. XARELTO [Suspect]
     Indication: CEREBROVASCULAR ACCIDENT
     Dosage: START DATE: 11-JAN-2013.
     Route: 048
     Dates: end: 201302
  10. XARELTO [Suspect]
     Indication: PULMONARY EMBOLISM
     Route: 048
     Dates: start: 20130315
  11. XARELTO [Suspect]
     Indication: PULMONARY EMBOLISM
     Dosage: START DATE: 11-JAN-2013.
     Route: 048
     Dates: end: 201302
  12. XARELTO [Suspect]
     Indication: PULMONARY EMBOLISM
     Route: 048
     Dates: start: 201302, end: 20130314
  13. XARELTO [Suspect]
     Indication: THROMBOSIS
     Route: 048
     Dates: start: 20130315
  14. XARELTO [Suspect]
     Indication: THROMBOSIS
     Dosage: START DATE: 11-JAN-2013.
     Route: 048
     Dates: end: 201302
  15. XARELTO [Suspect]
     Indication: THROMBOSIS
     Route: 048
     Dates: start: 201302, end: 20130314
  16. DIENOGEST/ETHINYLESTRADIOL [Suspect]
     Indication: MENORRHAGIA
     Route: 048
     Dates: start: 201304
  17. DIENOGEST/ETHINYLESTRADIOL [Suspect]
     Indication: MENORRHAGIA
     Route: 048
     Dates: end: 201212
  18. DIENOGEST/ETHINYLESTRADIOL [Suspect]
     Indication: ACNE
     Route: 048
     Dates: end: 201212
  19. DIENOGEST/ETHINYLESTRADIOL [Suspect]
     Indication: ACNE
     Route: 048
     Dates: start: 201304
  20. SIMVASTATIN [Concomitant]
     Indication: HYPERLIPIDAEMIA
     Route: 065
  21. ROCEPHIN [Concomitant]
     Indication: NEUROBORRELIOSIS
     Route: 042
     Dates: start: 20130111, end: 20130121
  22. PANTOZOL [Concomitant]
     Indication: PROPHYLAXIS
     Route: 065
     Dates: start: 20130111

REACTIONS (12)
  - Vaginal haemorrhage [Recovered/Resolved]
  - Menorrhagia [Recovered/Resolved]
  - Vaginal haemorrhage [Recovered/Resolved]
  - Haemorrhagic anaemia [Recovered/Resolved]
  - Deep vein thrombosis [Recovered/Resolved]
  - Cerebrovascular accident [Recovered/Resolved]
  - Pulmonary embolism [Recovered/Resolved]
  - Endometrial hypertrophy [Recovered/Resolved]
  - Incorrect drug administration duration [Unknown]
  - Off label use [Unknown]
  - Off label use [Unknown]
  - Overdose [Recovered/Resolved]
